FAERS Safety Report 9265706 (Version 1)
Quarter: 2013Q2

REPORT INFORMATION
  Report Type: Spontaneous
  Country: US (occurrence: US)
  Receive Date: 20130501
  Receipt Date: 20130501
  Transmission Date: 20140414
  Serious: Yes (Hospitalization)
  Sender: FDA-Public Use
  Company Number: US-BAXTER-2013BAX013152

PATIENT
  Sex: Female

DRUGS (2)
  1. DIANEAL LOW CALCIUM [Suspect]
     Indication: PERITONEAL DIALYSIS
     Route: 033
  2. IMMUNOGLOBULIN I.V [Concomitant]
     Indication: NEUROPATHY PERIPHERAL
     Route: 042

REACTIONS (1)
  - Neuropathy peripheral [Recovered/Resolved]
